FAERS Safety Report 8285996-2 (Version None)
Quarter: 2012Q2

REPORT INFORMATION
  Report Type: 
  Country: None (occurrence: None)
  Receive Date: 20120416
  Receipt Date: 20120406
  Transmission Date: 20120825
  Serious: Yes (Hospitalization)
  Sender: FDA-Public Use
  Company Number: US-BIOGENIDEC-2011BI047995

PATIENT
  Age: 61 Year
  Sex: Male

DRUGS (3)
  1. COLESTID [Concomitant]
     Indication: CROHN'S DISEASE
  2. LOMOTIL [Concomitant]
     Indication: CROHN'S DISEASE
  3. TYSABRI [Suspect]
     Indication: MULTIPLE SCLEROSIS
     Route: 042
     Dates: start: 20070115, end: 20111021

REACTIONS (4)
  - SKIN ULCER [None]
  - DECUBITUS ULCER [None]
  - OEDEMA PERIPHERAL [None]
  - WOUND [None]
